FAERS Safety Report 22918563 (Version 6)
Quarter: 2024Q1

REPORT INFORMATION
  Report Type: Spontaneous
  Country: US (occurrence: US)
  Receive Date: 20230907
  Receipt Date: 20240319
  Transmission Date: 20240410
  Serious: No
  Sender: FDA-Public Use
  Company Number: US-PFIZER INC-2019285411

PATIENT
  Age: 62 Year
  Sex: Female

DRUGS (3)
  1. PREMARIN [Suspect]
     Active Substance: ESTROGENS, CONJUGATED
     Dosage: 1 GM VAG 3X/WK AS NEEDED
     Route: 067
  2. PREMARIN [Suspect]
     Active Substance: ESTROGENS, CONJUGATED
     Dosage: 1GM VAG 3X/ WK AS NEEDED
     Route: 067
  3. PREMARIN [Suspect]
     Active Substance: ESTROGENS, CONJUGATED
     Dosage: 0.5 G (NIGHTLY FOR 2 WKS THEN TWICE WEEKLY)

REACTIONS (4)
  - Memory impairment [Unknown]
  - Feeling abnormal [Unknown]
  - Sleep disorder [Unknown]
  - Off label use [Unknown]
